FAERS Safety Report 6919922-2 (Version None)
Quarter: 2010Q3

REPORT INFORMATION
  Report Type: 
  Country: None (occurrence: None)
  Receive Date: 20100811
  Receipt Date: 20100729
  Transmission Date: 20110219
  Serious: Yes (Hospitalization, Other)
  Sender: FDA-Public Use
  Company Number: PHHY2010DE50414

PATIENT
  Age: 83 Year
  Sex: Male

DRUGS (4)
  1. ZOMETA [Suspect]
     Indication: METASTASES TO BONE
     Dosage: 4 MG
     Dates: start: 20080101, end: 20100317
  2. HEXAL [Concomitant]
     Dosage: UNK
     Dates: start: 20091111, end: 20100331
  3. VOTUM [Concomitant]
     Dosage: UNK
     Dates: end: 20100331
  4. CELLMUSTIN [Concomitant]

REACTIONS (10)
  - ACUTE CORONARY SYNDROME [None]
  - ASPARTATE AMINOTRANSFERASE INCREASED [None]
  - ATRIAL FIBRILLATION [None]
  - BLOOD ALKALINE PHOSPHATASE INCREASED [None]
  - BLOOD BILIRUBIN INCREASED [None]
  - BLOOD CREATININE INCREASED [None]
  - CHOLESTASIS [None]
  - HEPATITIS [None]
  - LIVER FUNCTION TEST ABNORMAL [None]
  - TACHYARRHYTHMIA [None]
